FAERS Safety Report 5511093-2 (Version None)
Quarter: 2007Q4

REPORT INFORMATION
  Report Type: 
  Country: None (occurrence: None)
  Receive Date: 20071107
  Receipt Date: 20071023
  Transmission Date: 20080405
  Serious: Yes (Hospitalization)
  Sender: FDA-Public Use
  Company Number: 163145ISR

PATIENT
  Age: 62 Year
  Sex: Female

DRUGS (1)
  1. AMOXICILLIN [Suspect]
     Indication: PYREXIA

REACTIONS (5)
  - CONFUSIONAL STATE [None]
  - DERMATOSIS [None]
  - LINEAR IGA DISEASE [None]
  - MENINGITIS [None]
  - VIRAL DNA TEST POSITIVE [None]
